FAERS Safety Report 16330877 (Version 1)
Quarter: 2019Q2

REPORT INFORMATION
  Report Type: Spontaneous
  Country: US (occurrence: US)
  Receive Date: 20190412
  Receipt Date: 20190412
  Transmission Date: 20190711
  Serious: Yes (Death)
  Sender: FDA-Public Use
  Company Number: None

PATIENT
  Age: 81 Year
  Sex: Male
  Weight: 74.39 kg

DRUGS (3)
  1. MORPHINE [Concomitant]
     Active Substance: MORPHINE
  2. OXYCODONE [Concomitant]
     Active Substance: OXYCODONE
  3. APIXABAN, 2.5 MG OR 5MG [Suspect]
     Active Substance: APIXABAN
     Indication: DEEP VEIN THROMBOSIS
     Dosage: 205 MG OR 50MG 2 TIMES DAILY
     Route: 048
     Dates: start: 20181010, end: 20181227

REACTIONS (4)
  - Mental status changes [None]
  - Hypokinesia [None]
  - Memory impairment [None]
  - Gait disturbance [None]

NARRATIVE: CASE EVENT DATE: 20190101
